FAERS Safety Report 7944969-7 (Version None)
Quarter: 2011Q4

REPORT INFORMATION
  Report Type: 
  Country: None (occurrence: None)
  Receive Date: 20111129
  Receipt Date: 20111116
  Transmission Date: 20120403
  Serious: No
  Sender: FDA-Public Use
  Company Number: US-BAYER-2011-026680

PATIENT
  Age: 79 Year
  Sex: Female
  Weight: 54 kg

DRUGS (8)
  1. ALEVE (CAPLET) [Suspect]
     Indication: ARTHRITIS
     Dosage: 2 DF, ONCE
     Route: 048
     Dates: start: 20110320
  2. ALEVE (CAPLET) [Suspect]
     Indication: HEADACHE
     Dosage: 2 U, ONCE
     Route: 048
     Dates: start: 20111116
  3. HEART MEDICATION (NOS) [Concomitant]
     Dosage: 1 DF, QD
  4. TRILIPIX [Concomitant]
  5. UNKNOWN [Concomitant]
     Dosage: 1 DF, QD
     Route: 048
  6. UNKNOWN [Concomitant]
  7. VITAMINS NOS [Concomitant]
  8. LIPITOR [Concomitant]

REACTIONS (1)
  - NO ADVERSE EVENT [None]
